FAERS Safety Report 5127562-3 (Version None)
Quarter: 2006Q4

REPORT INFORMATION
  Report Type: 
  Country: None (occurrence: None)
  Receive Date: 20061010
  Receipt Date: 20060925
  Transmission Date: 20070319
  Serious: Yes (Death, Hospitalization)
  Sender: FDA-Public Use
  Company Number: 2006107535

PATIENT
  Age: 71 Year
  Sex: Male
  Weight: 50.4 kg

DRUGS (15)
  1. VFEND [Suspect]
     Indication: BACTERIAL INFECTION
     Dosage: 140 MG (2 IN 1 D), INTRAVENOUS
     Route: 042
     Dates: start: 20060820, end: 20060826
  2. PURSENNID (SENNA LEAF) [Concomitant]
  3. OMEPRAZOLE [Concomitant]
  4. TAMSULOSIN HCL [Concomitant]
  5. LOXONIN (LOXOPROFEN SODIUM) [Concomitant]
  6. APLACE (TROXIPIDE) [Concomitant]
  7. MAGNESIUM OXIDE [Concomitant]
  8. DAI-KENCHU-TO [Concomitant]
  9. TETRAMIDE (MIANSERIN HYDROCHLORIDE) [Concomitant]
  10. DOGMATYL (SULPIRIDE) [Concomitant]
  11. GRAMALIL (TIAPRIDE HYDROCHLORIDE) [Concomitant]
  12. PESLIN (TRAZODONE HYDROCHLORIDE) [Concomitant]
  13. LENDORM [Concomitant]
  14. DEBAS (ETIZOLAM) [Concomitant]
  15. G*CSF (GRANULOCYTE COLONY STIMULATING FACTOR) [Concomitant]

REACTIONS (12)
  - BACTERIAL INFECTION [None]
  - CONDITION AGGRAVATED [None]
  - DYSPNOEA [None]
  - INTERSTITIAL LUNG DISEASE [None]
  - LUNG INFILTRATION [None]
  - METASTASES TO BONE [None]
  - METASTASES TO LUNG [None]
  - MULTIPLE MYELOMA [None]
  - OXYGEN SATURATION DECREASED [None]
  - PCO2 DECREASED [None]
  - PNEUMOCYSTIS JIROVECI PNEUMONIA [None]
  - RESPIRATORY ARREST [None]
